FAERS Safety Report 7529123-5 (Version None)
Quarter: 2011Q2

REPORT INFORMATION
  Report Type: 
  Country: None (occurrence: None)
  Receive Date: 20110607
  Receipt Date: 20050321
  Transmission Date: 20111010
  Serious: Yes (Death)
  Sender: FDA-Public Use
  Company Number: PHHO2004CA17872

PATIENT
  Sex: Male

DRUGS (1)
  1. CLOZARIL [Suspect]
     Dosage: 25 MG, QD
     Dates: start: 20040816

REACTIONS (3)
  - ASPIRATION [None]
  - STAPHYLOCOCCAL INFECTION [None]
  - CARDIO-RESPIRATORY ARREST [None]
